FAERS Safety Report 7050269-2 (Version None)
Quarter: 2010Q4

REPORT INFORMATION
  Report Type: 
  Country: None (occurrence: None)
  Receive Date: 20101013
  Receipt Date: 20101004
  Transmission Date: 20110411
  Serious: Yes (Death)
  Sender: FDA-Public Use
  Company Number: JHP201000305

PATIENT
  Age: 29 Year
  Sex: Male
  Weight: 70 kg

DRUGS (2)
  1. KETALAR [Suspect]
     Indication: DRUG ABUSE
     Dosage: INHALATION
     Route: 055
  2. ETHANOL (ETHANOL) [Suspect]
     Indication: ALCOHOLISM
     Dosage: ORAL
     Route: 048

REACTIONS (3)
  - ASPHYXIA [None]
  - COMPLETED SUICIDE [None]
  - DRUG INTERACTION [None]
